FAERS Safety Report 10141034 (Version 1)
Quarter: 2014Q2

REPORT INFORMATION
  Report Type: Spontaneous
  Country: IN (occurrence: IN)
  Receive Date: 20140429
  Receipt Date: 20140429
  Transmission Date: 20141212
  Serious: Yes (Other)
  Sender: FDA-Public Use
  Company Number: ALCN2014IN002613

PATIENT
  Age: 72 Year
  Sex: Male

DRUGS (8)
  1. PREDNISOLONE ACETATE [Suspect]
     Dosage: 1 DF, Q2H
     Route: 047
  2. PREDNISOLONE ACETATE [Suspect]
     Dosage: 1 DF, Q3H
     Route: 047
  3. NATAMYCIN [Suspect]
     Dosage: 1 DF, QH
     Route: 047
  4. HOMATROPINE [Suspect]
     Dosage: 1 DF, TID
     Route: 047
  5. HOMATROPINE [Suspect]
     Dosage: 1 DF, QD
     Route: 047
  6. CIPROFLOXACIN [Suspect]
     Dosage: 1 DF, Q2H
     Route: 047
  7. CYCLOSPORINE [Concomitant]
     Dosage: 1 DF, BID
  8. ITRACONAZOLE [Concomitant]
     Dosage: 1 DF, BID
     Route: 048

REACTIONS (4)
  - Necrotising scleritis [Recovered/Resolved with Sequelae]
  - Posterior capsule opacification [Unknown]
  - Anterior chamber cell [Recovered/Resolved]
  - Drug ineffective [Unknown]
